FAERS Safety Report 6549125-5 (Version None)
Quarter: 2010Q1

REPORT INFORMATION
  Report Type: 
  Country: None (occurrence: None)
  Receive Date: 20100125
  Receipt Date: 20100111
  Transmission Date: 20100710
  Serious: Yes (Hospitalization, Other)
  Sender: FDA-Public Use
  Company Number: US-AMGEN-QUU377759

PATIENT
  Sex: Male
  Weight: 86.2 kg

DRUGS (12)
  1. SENSIPAR [Suspect]
     Indication: HYPERPARATHYROIDISM SECONDARY
     Dates: start: 20070411
  2. FERROUS SULFATE TAB [Concomitant]
  3. VITAMIN D [Concomitant]
  4. FLUDROCORTISONE [Concomitant]
  5. AVAPRO [Concomitant]
  6. PLAVIX [Concomitant]
  7. METOPROLOL TARTRATE [Concomitant]
  8. ISOSORBIDE DINITRATE [Concomitant]
  9. HUMALOG [Concomitant]
  10. LEVEMIR [Concomitant]
  11. ASPIRIN [Concomitant]
  12. FUROSEMIDE [Concomitant]

REACTIONS (4)
  - BLOOD PARATHYROID HORMONE ABNORMAL [None]
  - HEPATIC NEOPLASM [None]
  - JAUNDICE CHOLESTATIC [None]
  - PANCREATIC CARCINOMA [None]
